FAERS Safety Report 4377963-6 (Version None)
Quarter: 2004Q2

REPORT INFORMATION
  Report Type: 
  Country: None (occurrence: None)
  Receive Date: 20040616
  Receipt Date: 20040602
  Transmission Date: 20050107
  Serious: Yes (Other)
  Sender: FDA-Public Use
  Company Number: PHEH2004US06120

PATIENT
  Sex: Female

DRUGS (2)
  1. DIOVAN [Suspect]
     Dosage: UNK/UNK
     Route: 048
  2. DIOVAN HCT [Suspect]
     Dosage: UNK/UNK
     Route: 048

REACTIONS (1)
  - BLOOD SODIUM DECREASED [None]
